FAERS Safety Report 4445733-6 (Version None)
Quarter: 2004Q3

REPORT INFORMATION
  Report Type: 
  Country: None (occurrence: None)
  Receive Date: 20040910
  Receipt Date: 20040826
  Transmission Date: 20050211
  Serious: Yes (Life-Threatening)
  Sender: FDA-Public Use
  Company Number: 200412780JP

PATIENT
  Age: 69 Year
  Sex: Female

DRUGS (3)
  1. TAXOTERE [Suspect]
     Indication: OVARIAN CANCER
     Route: 041
     Dates: start: 20040825, end: 20040825
  2. PARAPLATIN [Concomitant]
     Indication: OVARIAN CANCER
     Dosage: DOSE: ACU2.5
     Route: 041
     Dates: start: 20040825, end: 20040825
  3. SEROTONE [Concomitant]
     Dates: start: 20040825, end: 20040825

REACTIONS (6)
  - ANAPHYLACTIC SHOCK [None]
  - DIABETES MELLITUS [None]
  - DYSPNOEA [None]
  - FEELING ABNORMAL [None]
  - RESPIRATORY ARREST [None]
  - SEPSIS [None]
